FAERS Safety Report 13275629 (Version 1)
Quarter: 2017Q1

REPORT INFORMATION
  Report Type: Spontaneous
  Country: CA (occurrence: CA)
  Receive Date: 20170228
  Receipt Date: 20170228
  Transmission Date: 20170428
  Serious: Yes (Other)
  Sender: FDA-Public Use
  Company Number: CA-TEVA-744534ACC

PATIENT
  Age: 61 Year
  Sex: Female
  Weight: 73.55 kg

DRUGS (11)
  1. APO-HYDRO [Concomitant]
     Active Substance: HYDROCHLOROTHIAZIDE
  2. VITAMIN D [Concomitant]
     Active Substance: CHOLECALCIFEROL
  3. POTASSIUM [Concomitant]
     Active Substance: POTASSIUM
  4. VITAMIN B12 [Concomitant]
     Active Substance: CYANOCOBALAMIN
  5. XANAX TAB 0.5MG [Concomitant]
  6. PANTOPRAZOLE [Concomitant]
     Active Substance: PANTOPRAZOLE SODIUM
  7. METOPROLOL. [Concomitant]
     Active Substance: METOPROLOL
  8. CALCIUM [Concomitant]
     Active Substance: CALCIUM
  9. ROSUVASTATIN. [Suspect]
     Active Substance: ROSUVASTATIN
     Indication: BLOOD CHOLESTEROL
     Dosage: 5 MILLIGRAM DAILY;
     Route: 048
  10. SYNTHROID [Concomitant]
     Active Substance: LEVOTHYROXINE SODIUM
  11. TYLENOL EXTRA STRENGTH EZ [Concomitant]
     Active Substance: ACETAMINOPHEN

REACTIONS (5)
  - Back pain [Not Recovered/Not Resolved]
  - Burning sensation [Not Recovered/Not Resolved]
  - Pain in extremity [Not Recovered/Not Resolved]
  - Constipation [Not Recovered/Not Resolved]
  - Facial pain [Not Recovered/Not Resolved]
